FAERS Safety Report 7198449-X (Version None)
Quarter: 2010Q4

REPORT INFORMATION
  Report Type: 
  Country: None (occurrence: None)
  Receive Date: 20101223
  Receipt Date: 20101223
  Transmission Date: 20110411
  Serious: No
  Sender: FDA-Public Use
  Company Number: None

PATIENT
  Age: 23 Year
  Sex: Female
  Weight: 55.3388 kg

DRUGS (2)
  1. OXYCONTIN [Suspect]
     Indication: BONE DISORDER
     Dosage: 2 DAILY PO
     Route: 048
  2. OXYCONTIN [Suspect]
     Indication: OSTEOPOROSIS
     Dosage: 2 DAILY PO
     Route: 048

REACTIONS (4)
  - ABDOMINAL PAIN UPPER [None]
  - MEDICATION RESIDUE [None]
  - MIGRAINE [None]
  - PRODUCT FORMULATION ISSUE [None]
